FAERS Safety Report 8193379-9 (Version None)
Quarter: 2012Q1

REPORT INFORMATION
  Report Type: 
  Country: None (occurrence: None)
  Receive Date: 20120308
  Receipt Date: 20120302
  Transmission Date: 20120608
  Serious: Yes (Death)
  Sender: FDA-Public Use
  Company Number: CO-PFIZER INC-2012058417

PATIENT
  Sex: Female

DRUGS (3)
  1. LOSARTAN [Concomitant]
     Dosage: 50 MG, EVERY 12 HOURS
  2. LIPITOR [Suspect]
     Indication: DYSLIPIDAEMIA
     Dosage: 20 MG, ONCE A DAY
     Route: 048
     Dates: start: 20080603
  3. HYDROCHLOROTHIAZIDE [Concomitant]
     Dosage: 25 MG, ONCE A DAY

REACTIONS (1)
  - DEATH [None]
